FAERS Safety Report 4709352-6 (Version None)
Quarter: 2005Q3

REPORT INFORMATION
  Report Type: 
  Country: None (occurrence: None)
  Receive Date: 20050706
  Receipt Date: 20050622
  Transmission Date: 20060218
  Serious: Yes (Other)
  Sender: FDA-Public Use
  Company Number: 215541

PATIENT
  Age: 49 Year
  Sex: Female
  Weight: 61.8 kg

DRUGS (7)
  1. RITUXAN [Suspect]
     Indication: NON-HODGKIN'S LYMPHOMA
     Dosage: 600 MG, INTRAVENOUS
     Route: 042
     Dates: start: 20011207
  2. CYCLOPHOSPHAMIDE [Suspect]
     Indication: NON-HODGKIN'S LYMPHOMA
     Dosage: 2000 MG,
     Dates: start: 20011210, end: 20030124
  3. ETOPOSIDE [Suspect]
     Indication: NON-HODGKIN'S LYMPHOMA
     Dosage: 150 MG
     Dates: start: 20011210, end: 20030124
  4. CYCLOCIDE(CYTARABINE) [Suspect]
     Indication: NON-HODGKIN'S LYMPHOMA
     Dosage: 3.2 G
     Dates: start: 20011210, end: 20030124
  5. DECADRON [Suspect]
     Indication: NON-HODGKIN'S LYMPHOMA
     Dosage: 40 MG
     Dates: start: 20011210, end: 20030124
  6. POLARAMINE [Concomitant]
  7. LOXONIN (LOXOPROFEN SODIUM) [Concomitant]

REACTIONS (7)
  - ANAEMIA [None]
  - HEPATIC FUNCTION ABNORMAL [None]
  - PHARYNX DISCOMFORT [None]
  - PLATELET COUNT DECREASED [None]
  - PRURITUS [None]
  - URTICARIA [None]
  - WHITE BLOOD CELL COUNT DECREASED [None]
